FAERS Safety Report 17772081 (Version 2)
Quarter: 2020Q2

REPORT INFORMATION
  Report Type: Report from Study
  Country: IT (occurrence: IT)
  Receive Date: 20200512
  Receipt Date: 20200515
  Transmission Date: 20200714
  Serious: Yes (Other)
  Sender: FDA-Public Use
  Company Number: IT-ASTRAZENECA-2020SE61298

PATIENT
  Age: 47 Year
  Sex: Female

DRUGS (1)
  1. OLAPARIB. [Suspect]
     Active Substance: OLAPARIB
     Indication: BREAST CANCER
     Dosage: UNKNOWN
     Route: 048
     Dates: end: 20200218

REACTIONS (1)
  - Malignant neoplasm progression [Unknown]
